FAERS Safety Report 21479591 (Version 1)
Quarter: 2022Q4

REPORT INFORMATION
  Report Type: Spontaneous
  Country: US (occurrence: US)
  Receive Date: 20221019
  Receipt Date: 20221019
  Transmission Date: 20230113
  Serious: Yes (Hospitalization)
  Sender: FDA-Public Use
  Company Number: US-AMGEN-USASP2022177782

PATIENT
  Age: 38 Year
  Sex: Female

DRUGS (5)
  1. IVABRADINE [Suspect]
     Active Substance: IVABRADINE
     Indication: Postural orthostatic tachycardia syndrome
     Dosage: UNK
     Route: 065
  2. FUROSEMIDE [Concomitant]
     Active Substance: FUROSEMIDE
     Indication: Postural orthostatic tachycardia syndrome
     Route: 065
  3. HYDROCHLOROTHIAZIDE [Concomitant]
     Active Substance: HYDROCHLOROTHIAZIDE
     Indication: Postural orthostatic tachycardia syndrome
     Route: 065
  4. LISINOPRIL [Concomitant]
     Active Substance: LISINOPRIL
     Indication: Postural orthostatic tachycardia syndrome
     Route: 065
  5. CLONIDINE [Concomitant]
     Active Substance: CLONIDINE
     Indication: Postural orthostatic tachycardia syndrome
     Route: 065

REACTIONS (3)
  - Hospitalisation [Unknown]
  - Dizziness [Unknown]
  - Off label use [Unknown]
